FAERS Safety Report 19991611 (Version 2)
Quarter: 2021Q4

REPORT INFORMATION
  Report Type: Report from Study
  Country: GB (occurrence: GB)
  Receive Date: 20211025
  Receipt Date: 20211028
  Transmission Date: 20220304
  Serious: Yes (Other)
  Sender: FDA-Public Use
  Company Number: NVSC2021GB239318

PATIENT
  Sex: Female

DRUGS (1)
  1. COSENTYX [Suspect]
     Active Substance: SECUKINUMAB
     Indication: Psoriatic arthropathy
     Dosage: 300 MG/ 2 ML, QW (WEEKLY FOR WEEKS 0,1,2,3 AND MONTHLY FROM 4 ONWARDS)
     Route: 058
     Dates: start: 20210913

REACTIONS (2)
  - Lower respiratory tract infection [Unknown]
  - Fatigue [Unknown]
